FAERS Safety Report 16909670 (Version 3)
Quarter: 2019Q4

REPORT INFORMATION
  Report Type: Spontaneous
  Country: FR (occurrence: FR)
  Receive Date: 20191011
  Receipt Date: 20191113
  Transmission Date: 20200122
  Serious: Yes (Hospitalization, Other)
  Sender: FDA-Public Use
  Company Number: FR-OTSUKA-2018_030883

PATIENT
  Sex: Male

DRUGS (7)
  1. ABILIFY [Suspect]
     Active Substance: ARIPIPRAZOLE
     Indication: AUTISM SPECTRUM DISORDER
     Dosage: 10 MG, QD
     Route: 065
     Dates: start: 2003, end: 201803
  2. EFFEXOR [Suspect]
     Active Substance: VENLAFAXINE HYDROCHLORIDE
     Indication: PRODUCT USED FOR UNKNOWN INDICATION
     Dosage: 10 MG, UNK
     Route: 065
  3. EFFEXOR [Suspect]
     Active Substance: VENLAFAXINE HYDROCHLORIDE
     Dosage: 5 MG, UNK
     Route: 065
  4. ABILIFY [Suspect]
     Active Substance: ARIPIPRAZOLE
     Indication: SCHIZOID PERSONALITY DISORDER
     Dosage: 5 MG, QD
     Route: 065
     Dates: start: 201806, end: 201806
  5. NORSET [Concomitant]
     Active Substance: MIRTAZAPINE
     Indication: DEPRESSION
     Dosage: UNK
     Route: 065
  6. EFFEXOR [Suspect]
     Active Substance: VENLAFAXINE HYDROCHLORIDE
     Dosage: 15 MG, UNK
     Route: 065
  7. ABILIFY [Suspect]
     Active Substance: ARIPIPRAZOLE
     Indication: POST-TRAUMATIC STRESS DISORDER
     Dosage: 15 MG, QD
     Route: 065
     Dates: start: 2003, end: 201804

REACTIONS (21)
  - Adverse event [Unknown]
  - Nervousness [Unknown]
  - Weight increased [Recovered/Resolved]
  - Rebound effect [Unknown]
  - Crying [Recovered/Resolved]
  - Thinking abnormal [Recovered/Resolved]
  - Hypersomnia [Unknown]
  - Sedation [Recovered/Resolved]
  - Cardiac disorder [Unknown]
  - Autism spectrum disorder [Unknown]
  - Drug tolerance decreased [Unknown]
  - Confusional state [Unknown]
  - Agitation [Unknown]
  - Withdrawal syndrome [Unknown]
  - Delirium [Recovered/Resolved]
  - Incoherent [Unknown]
  - Impaired driving ability [Unknown]
  - Product use in unapproved indication [Unknown]
  - Delusion [Unknown]
  - Disorientation [Unknown]
  - Therapy cessation [Unknown]

NARRATIVE: CASE EVENT DATE: 2003
